FAERS Safety Report 20620110 (Version 1)
Quarter: 2022Q1

REPORT INFORMATION
  Report Type: Spontaneous
  Country: US (occurrence: US)
  Receive Date: 20220322
  Receipt Date: 20220322
  Transmission Date: 20220424
  Serious: Yes (Other)
  Sender: FDA-Public Use
  Company Number: US-SA-SAC20220317001023

PATIENT
  Age: 34 Year
  Sex: Male

DRUGS (1)
  1. ZANTAC [Suspect]
     Active Substance: RANITIDINE HYDROCHLORIDE
     Indication: Dyspepsia
     Dosage: QW, UNKNOWN AT THIS TIME
     Dates: start: 199901, end: 201506

REACTIONS (2)
  - Hepatic failure [Unknown]
  - Prostate cancer stage III [Recovered/Resolved]

NARRATIVE: CASE EVENT DATE: 20010601
